FAERS Safety Report 20544399 (Version 1)
Quarter: 2022Q1

REPORT INFORMATION
  Report Type: Spontaneous
  Country: ES (occurrence: ES)
  Receive Date: 20220303
  Receipt Date: 20220303
  Transmission Date: 20220423
  Serious: No
  Sender: FDA-Public Use
  Company Number: ES-LUPIN PHARMACEUTICALS INC.-2022-02685

PATIENT
  Age: 8 Decade
  Sex: Male

DRUGS (12)
  1. LEVOFLOXACIN [Suspect]
     Active Substance: LEVOFLOXACIN
     Indication: COVID-19
     Dosage: UNK (TWO COURSES)
     Route: 065
     Dates: start: 2021
  2. DEXAMETHASONE [Suspect]
     Active Substance: DEXAMETHASONE
     Indication: COVID-19
     Dosage: 4 MG, QD (TWO COURSES)
     Route: 065
     Dates: start: 2021
  3. DEXAMETHASONE [Suspect]
     Active Substance: DEXAMETHASONE
     Dosage: 6 MG, QD
     Route: 065
     Dates: start: 2021
  4. CYCLOSPORINE [Suspect]
     Active Substance: CYCLOSPORINE
     Indication: COVID-19
     Dosage: UNK (MORE THAN 5 MG/KG)
     Route: 065
     Dates: start: 2021
  5. COVID-19 CONVALESCENT PLASMA [Suspect]
     Active Substance: COVID-19 CONVALESCENT PLASMA
     Indication: COVID-19
     Dosage: UNK
     Route: 065
     Dates: start: 2021
  6. PLITIDEPSIN [Suspect]
     Active Substance: PLITIDEPSIN
     Indication: COVID-19
     Dosage: 2.5 MG, QD (ALSO RECEIVED SECOND EQUIVALENT COURSE OF PLITIDEPSIN)
     Route: 065
     Dates: start: 2021
  7. PLITIDEPSIN [Suspect]
     Active Substance: PLITIDEPSIN
     Dosage: UNK SECOND EQUIVALENT COURSE OF PLITIDEPSIN
     Route: 065
     Dates: start: 2021
  8. HUMAN IMMUNOGLOBULIN G [Suspect]
     Active Substance: HUMAN IMMUNOGLOBULIN G
     Indication: COVID-19
     Dosage: 20 GRAM (SINGLE DOSE)
     Route: 042
     Dates: start: 2021
  9. BEMIPARIN [Concomitant]
     Active Substance: BEMIPARIN
     Indication: Drug therapy
     Dosage: UNK
     Route: 065
     Dates: start: 2021
  10. OBINUTUZUMAB [Concomitant]
     Active Substance: OBINUTUZUMAB
     Indication: Chronic lymphocytic leukaemia
     Dosage: UNK
     Route: 065
  11. RITUXIMAB [Concomitant]
     Active Substance: RITUXIMAB
     Indication: Chronic lymphocytic leukaemia
     Dosage: UNK
     Route: 065
     Dates: start: 2016
  12. BENDAMUSTINE [Concomitant]
     Active Substance: BENDAMUSTINE
     Indication: Chronic lymphocytic leukaemia
     Dosage: UNK
     Route: 065
     Dates: start: 2016

REACTIONS (1)
  - Off label use [Unknown]

NARRATIVE: CASE EVENT DATE: 20210101
